FAERS Safety Report 10232583 (Version 2)
Quarter: 2014Q2

REPORT INFORMATION
  Report Type: Report from Study
  Country: US (occurrence: US)
  Receive Date: 20140612
  Receipt Date: 20140612
  Transmission Date: 20141212
  Serious: Yes (Other)
  Sender: FDA-Public Use
  Company Number: US-BAYER-2014-078418

PATIENT
  Age: 68 Year
  Sex: Male

DRUGS (2)
  1. NEXAVAR [Suspect]
     Indication: HEPATOCELLULAR CARCINOMA
     Dosage: 400 MG, BID
     Route: 048
     Dates: start: 20140518, end: 20140524
  2. NEXAVAR [Suspect]
     Indication: HEPATOCELLULAR CARCINOMA
     Dosage: 200 MG, BID
     Route: 048
     Dates: start: 20140525, end: 20140528

REACTIONS (10)
  - Aphagia [None]
  - Dyspnoea [Recovering/Resolving]
  - Fatigue [None]
  - Decreased appetite [Recovering/Resolving]
  - Hypersomnia [None]
  - Asthenia [None]
  - Weight decreased [None]
  - Coordination abnormal [None]
  - Chromaturia [None]
  - Oral candidiasis [Recovering/Resolving]
